FAERS Safety Report 9980737 (Version 2)
Quarter: 2014Q1

REPORT INFORMATION
  Report Type: Spontaneous
  Country: CA (occurrence: CA)
  Receive Date: 20140307
  Receipt Date: 20140307
  Transmission Date: 20141002
  Serious: Yes (Other)
  Sender: FDA-Public Use
  Company Number: CA-RANBAXY-2011US-48689

PATIENT
  Age: 15 Year
  Sex: Male

DRUGS (6)
  1. RISPERIDONE [Suspect]
     Indication: SELF INJURIOUS BEHAVIOUR
     Dosage: 0.25MG IN THE MORNING AND 0.5  AT NIGHT
     Route: 065
  2. RISPERIDONE [Suspect]
     Indication: TIC
  3. RISPERIDONE [Suspect]
     Indication: TIC
  4. RISPERIDONE [Suspect]
     Indication: SELF INJURIOUS BEHAVIOUR
     Dosage: 0.25 MG, BID
     Route: 065
  5. RISPERIDONE [Suspect]
     Indication: TIC
  6. RISPERIDONE [Suspect]
     Indication: TIC

REACTIONS (1)
  - Oculogyric crisis [Recovered/Resolved]
